FAERS Safety Report 5102697-X (Version None)
Quarter: 2006Q3

REPORT INFORMATION
  Report Type: 
  Country: None (occurrence: None)
  Receive Date: 20060912
  Receipt Date: 20060905
  Transmission Date: 20061208
  Serious: Yes (Death)
  Sender: FDA-Public Use
  Company Number: US-JNJFOC-20060901994

PATIENT
  Age: 52 Year
  Sex: Female

DRUGS (5)
  1. FENTANYL [Suspect]
     Indication: UNEVALUABLE EVENT
     Route: 062
  2. GABAPENTIN [Suspect]
     Indication: UNEVALUABLE EVENT
     Route: 065
  3. FLUOXETINE [Suspect]
     Indication: UNEVALUABLE EVENT
     Route: 065
  4. ALPRAZOLAM [Suspect]
     Indication: UNEVALUABLE EVENT
     Route: 065
  5. ZOLPIDEM TARTRATE [Suspect]
     Indication: UNEVALUABLE EVENT
     Route: 065

REACTIONS (1)
  - DEATH [None]
